FAERS Safety Report 7527053-6 (Version None)
Quarter: 2011Q2

REPORT INFORMATION
  Report Type: 
  Country: None (occurrence: None)
  Receive Date: 20110606
  Receipt Date: 20110526
  Transmission Date: 20111010
  Serious: Yes (Hospitalization)
  Sender: FDA-Public Use
  Company Number: US-ASTRAZENECA-2010SE53555

PATIENT
  Age: 45 Year
  Sex: Male
  Weight: 86.2 kg

DRUGS (8)
  1. REMERON [Concomitant]
  2. SEROQUEL [Suspect]
     Indication: SLEEP DISORDER
     Route: 048
     Dates: start: 20090101, end: 20100901
  3. SEROQUEL [Suspect]
     Indication: MAJOR DEPRESSION
     Route: 048
     Dates: start: 20090101, end: 20100901
  4. SEROQUEL [Suspect]
     Route: 048
  5. SEROQUEL [Suspect]
     Route: 048
  6. SEROQUEL [Suspect]
     Route: 048
  7. SEROQUEL [Suspect]
     Route: 048
     Dates: start: 20090101, end: 20100901
  8. PREVACID [Concomitant]
     Indication: GASTRIC DISORDER
     Route: 048

REACTIONS (11)
  - ABDOMINAL PAIN [None]
  - VOMITING [None]
  - ANXIETY [None]
  - DIARRHOEA [None]
  - GASTROINTESTINAL DISORDER [None]
  - INSOMNIA [None]
  - INTENTIONAL DRUG MISUSE [None]
  - DRUG DOSE OMISSION [None]
  - NAUSEA [None]
  - WITHDRAWAL SYNDROME [None]
  - DEPRESSION [None]
